FAERS Safety Report 10362512 (Version 1)
Quarter: 2014Q3

REPORT INFORMATION
  Report Type: Spontaneous
  Country: FR (occurrence: FR)
  Receive Date: 20140805
  Receipt Date: 20140805
  Transmission Date: 20150326
  Serious: Yes (Hospitalization)
  Sender: FDA-Public Use
  Company Number: PHHY2014FR094991

PATIENT
  Age: 55 Year
  Sex: Male

DRUGS (6)
  1. LEPONEX [Suspect]
     Active Substance: CLOZAPINE
     Dosage: 100 MG, DAILY
     Dates: start: 20140516
  2. LOXAPAC [Suspect]
     Active Substance: LOXAPINE SUCCINATE
     Dosage: 100 MG, QD
     Dates: end: 20140515
  3. TEMESTA [Concomitant]
     Active Substance: LORAZEPAM
     Dosage: UNK UKN, UNK
     Dates: start: 20140516
  4. HALDOL DECANOATE [Suspect]
     Active Substance: HALOPERIDOL DECANOATE
     Dosage: 100 MG, QMO (ONCE A MONTH)
     Dates: end: 20140515
  5. LEPONEX [Suspect]
     Active Substance: CLOZAPINE
     Dosage: 300 MG, QD
  6. TERCIAN [Suspect]
     Active Substance: CYAMEMAZINE
     Dosage: UNK UKN, PRN (AS REQUIRED)

REACTIONS (6)
  - Dehydration [Recovered/Resolved]
  - Miosis [Recovered/Resolved]
  - Bradypnoea [Recovered/Resolved]
  - Somnolence [Recovered/Resolved]
  - Dysarthria [Recovered/Resolved]
  - Overdose [Recovered/Resolved]

NARRATIVE: CASE EVENT DATE: 20140515
